FAERS Safety Report 8787951 (Version 1)
Quarter: 2012Q4

REPORT INFORMATION
  Report Type: 
  Country: US (occurrence: US)
  Receive Date: 20120914
  Receipt Date: 20120914
  Transmission Date: 20130627
  Serious: No
  Sender: FDA-Public Use
  Company Number: US-VERTEX PHARMACEUTICAL INC.-AE-2012-005276

PATIENT
  Age: 56 None
  Sex: Female
  Weight: 67.27 kg

DRUGS (5)
  1. INCIVEK [Suspect]
     Indication: HEPATITIS C
     Route: 048
     Dates: start: 20120328
  2. PEGASYS [Concomitant]
     Indication: HEPATITIS C
     Route: 058
     Dates: start: 20120328
  3. RIBAVIRIN [Concomitant]
     Indication: HEPATITIS C
     Route: 048
     Dates: start: 20120329
  4. METHOCARBAMOL [Concomitant]
     Route: 048
  5. CALCIUM WITH VITAMIN D [Concomitant]
     Route: 048

REACTIONS (11)
  - Anxiety [Unknown]
  - Paraesthesia [Unknown]
  - Tremor [Unknown]
  - Chills [Recovered/Resolved]
  - Oral disorder [Unknown]
  - Tooth repair [Unknown]
  - Fatigue [Not Recovered/Not Resolved]
  - Frequent bowel movements [Not Recovered/Not Resolved]
  - Rash pruritic [Not Recovered/Not Resolved]
  - Haemorrhoids [Not Recovered/Not Resolved]
  - Dysgeusia [Unknown]
